FAERS Safety Report 4284504-0 (Version None)
Quarter: 2004Q1

REPORT INFORMATION
  Report Type: 
  Country: None (occurrence: None)
  Receive Date: 20040130
  Receipt Date: 20040130
  Transmission Date: 20041129
  Serious: Yes (Life-Threatening, Hospitalization)
  Sender: FDA-Public Use
  Company Number: None

PATIENT
  Age: 85 Year
  Sex: Female
  Weight: 70 kg

DRUGS (3)
  1. LASIX [Suspect]
     Indication: CARDIAC FAILURE CONGESTIVE
     Dosage: 40 MG PO QD
     Route: 048
     Dates: start: 20000101, end: 20040101
  2. VASOTEC [Suspect]
     Indication: HYPERTENSION
     Dosage: 10 MG PO BID
     Route: 048
     Dates: start: 20000101, end: 20040101
  3. HYDROCHLOROTHIAZIDE [Concomitant]

REACTIONS (3)
  - NAUSEA [None]
  - PANCREATITIS [None]
  - VOMITING [None]
